FAERS Safety Report 8065277-2 (Version None)
Quarter: 2012Q1

REPORT INFORMATION
  Report Type: 
  Country: None (occurrence: None)
  Receive Date: 20120124
  Receipt Date: 20120118
  Transmission Date: 20120608
  Serious: Yes (Hospitalization)
  Sender: FDA-Public Use
  Company Number: US-BAYER-2011-078750

PATIENT
  Age: 59 Year
  Sex: Male

DRUGS (21)
  1. MIRTAZAPINE [Concomitant]
     Dosage: UNK
     Dates: start: 20110615
  2. ALPRAZOLAM [Concomitant]
     Dosage: 0.25 MG, QD
     Dates: start: 20110809
  3. NEXAVAR [Suspect]
     Indication: HEPATIC NEOPLASM MALIGNANT
     Dosage: 200 MG, BID
     Route: 048
     Dates: start: 20100804, end: 20111113
  4. GENERLAC [Concomitant]
     Dosage: UNK, QD
     Dates: start: 20110609
  5. PANTOPRAZOLE [Concomitant]
     Dosage: UNK
     Dates: start: 20110623
  6. LORAZEPAM [Concomitant]
     Dosage: UNK
     Dates: start: 20110809
  7. CENTRUM [Concomitant]
     Dosage: UNK UNK, QD
     Dates: start: 20110609
  8. ACETAMINOPHEN AND HYDROCODONE BITARTRATE [Concomitant]
     Dosage: UNK, HS
  9. SPIRONOLACTONE [Concomitant]
     Dosage: UNK
     Dates: start: 20110809
  10. METHADONE HCL [Concomitant]
     Dosage: UNK
     Dates: start: 20110712
  11. NICOTINE [Concomitant]
     Dosage: UNK
     Dates: start: 20110706
  12. METOCLOPRAMIDE [Concomitant]
     Dosage: UNK
     Dates: start: 20110524
  13. ACETAMINOPHEN AND HYDROCODONE BITARTRATE [Concomitant]
     Dosage: UNK
     Dates: start: 20110321
  14. HYDROMORPHONE HCL [Concomitant]
     Dosage: 4 MG/H, UNK
     Dates: start: 20110609
  15. METOCLOPRAM [Concomitant]
     Dosage: 10 MG, QD
     Dates: start: 20110609
  16. NEXAVAR [Suspect]
     Dosage: 200 MG, BID
     Route: 048
  17. OXYCODONE HCL [Concomitant]
     Dosage: UNK
     Dates: start: 20110823
  18. NICOTINE [Concomitant]
     Dosage: UNK
     Dates: start: 20110524
  19. FUROSEMIDE [Concomitant]
     Dosage: UNK
     Dates: start: 20110809
  20. GENERLAC [Concomitant]
     Dosage: UNK
     Dates: start: 20110809
  21. HYDROMORPHONE HCL [Concomitant]
     Dosage: UNK
     Dates: start: 20110621

REACTIONS (6)
  - MUSCLE SPASMS [None]
  - BLOOD MAGNESIUM DECREASED [None]
  - DIARRHOEA [None]
  - PALMAR-PLANTAR ERYTHRODYSAESTHESIA SYNDROME [None]
  - FATIGUE [None]
  - BLOOD SODIUM DECREASED [None]
